FAERS Safety Report 6301166-9 (Version None)
Quarter: 2009Q3

REPORT INFORMATION
  Report Type: 
  Country: None (occurrence: None)
  Receive Date: 20090807
  Receipt Date: 20090731
  Transmission Date: 20100115
  Serious: Yes (Hospitalization, Other)
  Sender: FDA-Public Use
  Company Number: US-AMGEN-STX358273

PATIENT
  Sex: Female

DRUGS (10)
  1. SENSIPAR [Suspect]
     Indication: HYPERPARATHYROIDISM SECONDARY
  2. GLIPIZIDE [Concomitant]
  3. LASIX [Concomitant]
  4. LANTUS [Concomitant]
  5. PROGRAF [Concomitant]
  6. CELLCEPT [Concomitant]
  7. PREDNISONE [Concomitant]
  8. TOPROL-XL [Concomitant]
  9. ZOCOR [Concomitant]
  10. ASPIRIN [Concomitant]

REACTIONS (4)
  - CHEST TUBE INSERTION [None]
  - DIALYSIS DEVICE INSERTION [None]
  - FLUID OVERLOAD [None]
  - TRACHEOSTOMY [None]
